FAERS Safety Report 10257336 (Version 1)
Quarter: 2014Q2

REPORT INFORMATION
  Report Type: Spontaneous
  Country: US (occurrence: None)
  Receive Date: 20140623
  Receipt Date: 20140623
  Transmission Date: 20141212
  Serious: Yes (Other)
  Sender: FDA-Public Use
  Company Number: None

PATIENT
  Age: 13 Year
  Sex: Male

DRUGS (1)
  1. ZONISAMIDE [Suspect]
     Indication: CONVULSION
     Dosage: 2 PILLS INITIALLY THEN INCREASED TO 5  1X PER DAY, IN JUICE OR FOOD DUE TO CHILD^S AUTISM SENSORY ISSUES
     Route: 048
     Dates: start: 20140105

REACTIONS (1)
  - Alopecia [None]
